FAERS Safety Report 9796353 (Version 2)
Quarter: 2014Q1

REPORT INFORMATION
  Report Type: Spontaneous
  Country: CL (occurrence: CL)
  Receive Date: 20140103
  Receipt Date: 20140109
  Transmission Date: 20141002
  Serious: Yes (Death, Other)
  Sender: FDA-Public Use
  Company Number: CL-PFIZER INC-2013374626

PATIENT
  Age: 89 Year
  Sex: Male

DRUGS (3)
  1. XALATAN [Suspect]
     Indication: GLAUCOMA
     Dosage: 1 DF, 1X/DAY
     Route: 047
     Dates: start: 2003, end: 2012
  2. XALACOM [Suspect]
     Indication: GLAUCOMA
     Dosage: 1 DF, 1X/DAY
     Route: 047
     Dates: start: 2012
  3. ISOSORBIDE [Concomitant]

REACTIONS (3)
  - Multi-organ failure [Fatal]
  - Prostate cancer [Unknown]
  - Hip fracture [Unknown]
